FAERS Safety Report 8698038 (Version 2)
Quarter: 2013Q4

REPORT INFORMATION
  Report Type: Spontaneous
  Country: US (occurrence: US)
  Receive Date: 20120802
  Receipt Date: 20131108
  Transmission Date: 20140711
  Serious: Yes (Other)
  Sender: FDA-Public Use
  Company Number: US-009507513-1207USA009785

PATIENT
  Age: 55 Year
  Sex: Male

DRUGS (1)
  1. ZOCOR [Suspect]
     Dosage: 20 MG, QD
     Route: 048

REACTIONS (2)
  - C-reactive protein increased [Unknown]
  - Blood creatine phosphokinase increased [Unknown]
